FAERS Safety Report 7372824-2 (Version None)
Quarter: 2011Q1

REPORT INFORMATION
  Report Type: 
  Country: None (occurrence: None)
  Receive Date: 20110316
  Receipt Date: 20110308
  Transmission Date: 20110831
  Serious: Yes (Death)
  Sender: FDA-Public Use
  Company Number: TAJPN-11-0165

PATIENT
  Age: 57 Year
  Sex: Female
  Weight: 64 kg

DRUGS (2)
  1. AROMASIN [Concomitant]
  2. ABRAXANE [Suspect]
     Indication: BREAST CANCER METASTATIC
     Dosage: (260 MG)
     Dates: start: 20110216, end: 20110216

REACTIONS (4)
  - ASTHENIA [None]
  - FALL [None]
  - DYSARTHRIA [None]
  - SUDDEN DEATH [None]
